FAERS Safety Report 7660422-2 (Version None)
Quarter: 2011Q3

REPORT INFORMATION
  Report Type: 
  Country: None (occurrence: None)
  Receive Date: 20110805
  Receipt Date: 20110803
  Transmission Date: 20111222
  Serious: Yes (Death, Hospitalization, Other)
  Sender: FDA-Public Use
  Company Number: JP-ABBOTT-11P-087-0734095-00

PATIENT
  Sex: Female

DRUGS (7)
  1. METHOTREXATE [Suspect]
     Indication: RHEUMATOID ARTHRITIS
     Route: 048
     Dates: start: 20001128, end: 20110610
  2. BUCILLAMINE [Concomitant]
     Indication: RHEUMATOID ARTHRITIS
     Route: 048
     Dates: start: 20050207, end: 20110610
  3. CELECOXIB [Concomitant]
     Indication: RHEUMATOID ARTHRITIS
     Route: 048
     Dates: start: 20090813, end: 20110610
  4. DICLOFENAC SODIUM [Suspect]
     Indication: RHEUMATOID ARTHRITIS
     Route: 054
     Dates: start: 20100423, end: 20110610
  5. HUMIRA [Suspect]
     Indication: RHEUMATOID ARTHRITIS
     Route: 058
     Dates: start: 20100430, end: 20110527
  6. MISOPROSTOL [Concomitant]
     Indication: GASTROINTESTINAL DISORDER
     Route: 048
     Dates: start: 20000501, end: 20110610
  7. LAFUTIDINE [Concomitant]
     Indication: GASTROINTESTINAL DISORDER
     Route: 048
     Dates: start: 20090813, end: 20110610

REACTIONS (18)
  - FEELING HOT [None]
  - BRADYCARDIA [None]
  - PANCYTOPENIA [None]
  - PAIN IN EXTREMITY [None]
  - OEDEMA PERIPHERAL [None]
  - CARDIAC ARREST [None]
  - SEPTIC SHOCK [None]
  - CELLULITIS [None]
  - URINE OUTPUT DECREASED [None]
  - BLOOD CREATININE INCREASED [None]
  - SPEECH DISORDER [None]
  - BACTERIAL INFECTION [None]
  - THERMAL BURN [None]
  - INFLAMMATION [None]
  - INCORRECT DOSE ADMINISTERED [None]
  - PAIN [None]
  - HYPOTENSION [None]
  - VASOCONSTRICTION [None]
